FAERS Safety Report 5980327-2 (Version None)
Quarter: 2008Q4

REPORT INFORMATION
  Report Type: 
  Country: None (occurrence: None)
  Receive Date: 20081205
  Receipt Date: 20081126
  Transmission Date: 20090506
  Serious: Yes (Other)
  Sender: FDA-Public Use
  Company Number: SE-AMGEN-UK321238

PATIENT
  Age: 56 Year
  Sex: Male

DRUGS (2)
  1. NEULASTA [Suspect]
     Indication: CHEMOTHERAPY
     Route: 065
  2. UNSPECIFIED ANTINEOPLASTIC AGENT [Concomitant]
     Route: 065

REACTIONS (7)
  - ANAPHYLACTIC SHOCK [None]
  - ANGIOEDEMA [None]
  - DYSPNOEA [None]
  - HYPERSENSITIVITY [None]
  - OEDEMA MOUTH [None]
  - PRURITUS [None]
  - RASH [None]
